FAERS Safety Report 21971429 (Version 1)
Quarter: 2023Q1

REPORT INFORMATION
  Report Type: Spontaneous
  Country: US (occurrence: US)
  Receive Date: 20230209
  Receipt Date: 20230209
  Transmission Date: 20230418
  Serious: Yes (Other)
  Sender: FDA-Public Use
  Company Number: US-ROCHE-3277287

PATIENT
  Age: 34 Year
  Sex: Female

DRUGS (11)
  1. CLONAZEPAM [Suspect]
     Active Substance: CLONAZEPAM
     Indication: Product used for unknown indication
     Route: 048
  2. RITUXAN [Suspect]
     Active Substance: RITUXIMAB
     Indication: Neuromyelitis optica spectrum disorder
  3. BACLOFEN [Concomitant]
     Active Substance: BACLOFEN
     Dosage: TID?DAILY DOSE: 30 MILLIGRAM
  4. GABAPENTIN [Concomitant]
     Active Substance: GABAPENTIN
     Dosage: TID?DAILY DOSE: 900 MILLIGRAM
  5. LAMOTRIGINE [Concomitant]
     Active Substance: LAMOTRIGINE
     Dosage: BID?DAILY DOSE: 50 MILLIGRAM
  6. DULOXETINE [Concomitant]
     Active Substance: DULOXETINE
  7. LEVOTHYROXINE [Concomitant]
     Active Substance: LEVOTHYROXINE
  8. MELATONIN [Concomitant]
     Active Substance: MELATONIN
  9. NOVOLOG [Concomitant]
     Active Substance: INSULIN ASPART
  10. PERCOCET [Concomitant]
     Active Substance: ACETAMINOPHEN\OXYCODONE HYDROCHLORIDE
     Dosage: FOUR TIMES A DAY
     Route: 048
  11. TORSEMIDE [Concomitant]
     Active Substance: TORSEMIDE
     Route: 048

REACTIONS (7)
  - Seizure [Unknown]
  - Multiple sclerosis [Unknown]
  - Blindness [Unknown]
  - Impaired healing [Unknown]
  - Depression [Unknown]
  - Hypoaesthesia [Unknown]
  - Disease progression [Unknown]
